FAERS Safety Report 18152316 (Version 1)
Quarter: 2020Q3

REPORT INFORMATION
  Report Type: Spontaneous
  Country: US (occurrence: US)
  Receive Date: 20200814
  Receipt Date: 20200814
  Transmission Date: 20201103
  Serious: Yes (Hospitalization, Other)
  Sender: FDA-Public Use
  Company Number: US-JNJFOC-20160722615

PATIENT

DRUGS (2)
  1. TOPAMAX [Suspect]
     Active Substance: TOPIRAMATE
     Indication: CRANIOCEREBRAL INJURY
     Dosage: 25?300 MG/DAY
     Route: 048
  2. TOPAMAX [Suspect]
     Active Substance: TOPIRAMATE
     Indication: ALCOHOL USE DISORDER

REACTIONS (12)
  - Pruritus [Unknown]
  - Taste disorder [Unknown]
  - Alcohol withdrawal syndrome [Unknown]
  - Speech disorder [Unknown]
  - Memory impairment [Unknown]
  - Drug abuse [Unknown]
  - Product use in unapproved indication [Unknown]
  - Homicidal ideation [Unknown]
  - Chest pain [Unknown]
  - Somnolence [Unknown]
  - Hypoaesthesia [Unknown]
  - Off label use [Unknown]
